FAERS Safety Report 6714572-5 (Version None)
Quarter: 2010Q2

REPORT INFORMATION
  Report Type: 
  Country: None (occurrence: None)
  Receive Date: 20100507
  Receipt Date: 20100423
  Transmission Date: 20101027
  Serious: Yes (Hospitalization)
  Sender: FDA-Public Use
  Company Number: DE-RANBAXY-2009RR-22416

PATIENT
  Age: 71 Year
  Sex: Female
  Weight: 85 kg

DRUGS (14)
  1. BISOPROLOL [Suspect]
     Indication: HYPERTENSION
     Dosage: 10 MG, QD
     Route: 048
     Dates: start: 20080801
  2. BISOPROLOL [Suspect]
     Dosage: 5 MG, UNK
     Dates: start: 20081004
  3. AMLODIPINE [Suspect]
     Indication: HYPERTENSION
     Dosage: 10 MG, QD
     Route: 048
     Dates: start: 20000101
  4. AMLODIPINE [Suspect]
     Dosage: 5 MG, UNK
  5. ACETYLSALICYLSAEURE [Concomitant]
     Indication: MYOCARDIAL INFARCTION
     Dosage: 100 MG, QD
     Route: 048
     Dates: start: 20080922
  6. DOXEPIN HCL [Concomitant]
     Indication: DEPRESSION
     Dosage: 20 MG, BID
     Route: 048
     Dates: start: 20080901
  7. HYDROCHLOROTHIAZIDE [Concomitant]
     Indication: HYPERTENSION
     Dosage: 25 MG, QD
     Route: 048
     Dates: start: 20000101
  8. HYDROCHLOROTHIAZIDE [Concomitant]
     Dosage: 12.5 MG, UNK
  9. MANINIL ^BERLIN-CHEMIE^ [Concomitant]
     Indication: TYPE 2 DIABETES MELLITUS
     Dosage: 1 MG, BID
     Route: 048
     Dates: start: 19920101
  10. PANTOZOL [Concomitant]
     Indication: DUODENAL ULCER
     Dosage: 40 MG, QD
     Route: 048
     Dates: start: 20080922
  11. PLAVIX [Concomitant]
     Indication: MYOCARDIAL INFARCTION
     Dosage: 75 MG, QD
     Route: 048
     Dates: start: 20080922
  12. RAMIPRIL [Concomitant]
     Indication: HYPERTENSION
     Dosage: 2.5 MG, BID
     Route: 048
     Dates: start: 20080901
  13. RAMIPRIL [Concomitant]
     Dosage: 2.5 MG, QD
  14. SIMVASTATIN [Concomitant]
     Indication: HYPERLIPIDAEMIA
     Dosage: 40 MG, QD
     Route: 048
     Dates: start: 20080830

REACTIONS (2)
  - BRADYCARDIA [None]
  - DRUG INTERACTION [None]
